FAERS Safety Report 5970356-7 (Version None)
Quarter: 2008Q4

REPORT INFORMATION
  Report Type: 
  Country: None (occurrence: None)
  Receive Date: 20081126
  Receipt Date: 20081118
  Transmission Date: 20090506
  Serious: Yes (Other)
  Sender: FDA-Public Use
  Company Number: GB-PFIZER INC-2008098759

PATIENT
  Age: 46 Year
  Sex: Male

DRUGS (1)
  1. CHAMPIX [Suspect]
     Route: 048
     Dates: end: 20081001

REACTIONS (2)
  - AGGRESSION [None]
  - BLOOD GLUCOSE INCREASED [None]
